FAERS Safety Report 6058572-X (Version None)
Quarter: 2009Q1

REPORT INFORMATION
  Report Type: 
  Country: None (occurrence: None)
  Receive Date: 20090130
  Receipt Date: 20090121
  Transmission Date: 20090719
  Serious: No
  Sender: FDA-Public Use
  Company Number: US-JNJFOC-20090100156

PATIENT
  Sex: Female
  Weight: 90.72 kg

DRUGS (5)
  1. FENTANYL TRANSDERMAL SYSTEM [Suspect]
     Indication: BACK PAIN
     Route: 062
  2. FENTANYL TRANSDERMAL SYSTEM [Concomitant]
     Route: 062
  3. LYRICA [Concomitant]
     Indication: NEUROPATHY PERIPHERAL
     Route: 048
  4. TRAMADOL HCL [Concomitant]
     Indication: NEUROPATHY PERIPHERAL
     Route: 048
  5. LUNESTA [Concomitant]
     Indication: SLEEP DISORDER
     Route: 048

REACTIONS (2)
  - HYPOAESTHESIA [None]
  - WRONG TECHNIQUE IN DRUG USAGE PROCESS [None]
